FAERS Safety Report 5583473-0 (Version None)
Quarter: 2008Q1

REPORT INFORMATION
  Report Type: 
  Country: None (occurrence: None)
  Receive Date: 20080107
  Receipt Date: 20071031
  Transmission Date: 20080703
  Serious: No
  Sender: FDA-Public Use
  Company Number: US-BOEHRINGER INGELHEIM PHARMACEUTICALS, INC.-2007-BP-26280BP

PATIENT
  Age: 48 Year
  Sex: Female

DRUGS (1)
  1. MIRAPEX [Suspect]
     Indication: DEPRESSION
     Route: 048

REACTIONS (4)
  - DISTURBANCE IN ATTENTION [None]
  - MEMORY IMPAIRMENT [None]
  - PATHOLOGICAL GAMBLING [None]
  - WEIGHT DECREASED [None]
